FAERS Safety Report 7343853-X (Version None)
Quarter: 2011Q1

REPORT INFORMATION
  Report Type: 
  Country: None (occurrence: None)
  Receive Date: 20110310
  Receipt Date: 20110307
  Transmission Date: 20110831
  Serious: Yes (Hospitalization)
  Sender: FDA-Public Use
  Company Number: FR-ROCHE-753329

PATIENT
  Sex: Male

DRUGS (4)
  1. CORTANCYL [Concomitant]
     Indication: RHEUMATOID ARTHRITIS
     Route: 048
  2. ROACTEMRA [Suspect]
     Route: 042
     Dates: start: 20100309
  3. METHOTREXATE [Suspect]
     Indication: RHEUMATOID ARTHRITIS
     Dosage: DRIG NAME: METHOTREXATE ASTA MEDICA
     Route: 065
  4. ROACTEMRA [Suspect]
     Indication: RHEUMATOID ARTHRITIS
     Dosage: FREQ: CYCLIC. FORM: INJECTION
     Route: 042
     Dates: start: 20100205, end: 20100205

REACTIONS (3)
  - RALES [None]
  - LUNG DISORDER [None]
  - PLEURAL EFFUSION [None]
